FAERS Safety Report 4569608-7 (Version None)
Quarter: 2005Q1

REPORT INFORMATION
  Report Type: 
  Country: None (occurrence: None)
  Receive Date: 20050203
  Receipt Date: 20050124
  Transmission Date: 20050727
  Serious: Yes (Hospitalization)
  Sender: FDA-Public Use
  Company Number: US-ABBOTT-05P-163-0288127-00

PATIENT
  Sex: Female

DRUGS (2)
  1. HUMIRA [Suspect]
     Indication: RHEUMATOID ARTHRITIS
     Route: 058
     Dates: start: 20040101, end: 20050101
  2. TRAZODONE [Concomitant]
     Indication: DEPRESSION
     Route: 048
     Dates: end: 20050101

REACTIONS (4)
  - ANIMAL BITE [None]
  - DEPRESSION [None]
  - WOUND INFECTION [None]
  - WOUND NECROSIS [None]
